FAERS Safety Report 9709023 (Version 1)
Quarter: 2013Q4

REPORT INFORMATION
  Report Type: Spontaneous
  Country: AU (occurrence: AU)
  Receive Date: 20131125
  Receipt Date: 20131125
  Transmission Date: 20140711
  Serious: Yes (Death, Other)
  Sender: FDA-Public Use
  Company Number: AU-MYLANLABS-2013S1025731

PATIENT
  Age: 28 Year
  Sex: Female

DRUGS (3)
  1. ADRIAMYCIN [Suspect]
     Indication: BREAST CANCER
     Route: 065
  2. CYCLOPHOSPHAMIDE [Suspect]
     Indication: BREAST CANCER
     Route: 065
  3. PACLITAXEL [Suspect]
     Indication: BREAST CANCER
     Route: 065

REACTIONS (2)
  - Acute myeloid leukaemia [Not Recovered/Not Resolved]
  - Sepsis [Fatal]
